FAERS Safety Report 12406528 (Version 1)
Quarter: 2016Q2

REPORT INFORMATION
  Report Type: Spontaneous
  Country: US (occurrence: None)
  Receive Date: 20160525
  Receipt Date: 20160525
  Transmission Date: 20160815
  Serious: No
  Sender: FDA-Public Use
  Company Number: None

PATIENT
  Age: 74 Year
  Sex: Female

DRUGS (1)
  1. SOVALDI [Suspect]
     Active Substance: SOFOSBUVIR
     Indication: CHRONIC HEPATITIS
     Dosage: 90-400 MG ORAL
     Route: 048

REACTIONS (3)
  - Nausea [None]
  - Chest discomfort [None]
  - Red blood cell count decreased [None]

NARRATIVE: CASE EVENT DATE: 20160524
